FAERS Safety Report 22957958 (Version 2)
Quarter: 2023Q4

REPORT INFORMATION
  Report Type: Spontaneous
  Country: JP (occurrence: JP)
  Receive Date: 20230919
  Receipt Date: 20231014
  Transmission Date: 20240110
  Serious: Yes (Other)
  Sender: FDA-Public Use
  Company Number: JP-AMGEN-JPNSP2023157850

PATIENT
  Sex: Female

DRUGS (2)
  1. BLINCYTO [Suspect]
     Active Substance: BLINATUMOMAB
     Indication: Philadelphia positive acute lymphocytic leukaemia
     Dosage: 9 MICROGRAM, QD (DRIP INFUSION)
     Route: 042
     Dates: start: 20230829, end: 20230904
  2. BLINCYTO [Suspect]
     Active Substance: BLINATUMOMAB
     Dosage: 28 MICROGRAM, QD (DRIP INFUSION)
     Route: 042
     Dates: start: 20230905, end: 20230908

REACTIONS (4)
  - Epilepsy [Recovered/Resolved]
  - Tremor [Recovered/Resolved]
  - Headache [Unknown]
  - Pyrexia [Recovered/Resolved]

NARRATIVE: CASE EVENT DATE: 20230101
